FAERS Safety Report 7378298-X (Version None)
Quarter: 2011Q1

REPORT INFORMATION
  Report Type: 
  Country: None (occurrence: None)
  Receive Date: 20110317
  Receipt Date: 20110307
  Transmission Date: 20110831
  Serious: Yes (Death, Hospitalization)
  Sender: FDA-Public Use
  Company Number: UTC-005447

PATIENT
  Age: 72 Year
  Sex: Male
  Weight: 81.4 kg

DRUGS (5)
  1. REMODULIN [Suspect]
     Indication: PULMONARY ARTERIAL HYPERTENSION
     Dosage: 66.24 UG/KG (0.046 UG/KG,1 IN 1 MIN),SUBCUTANEOUS
     Route: 058
     Dates: start: 20100331
  2. COUMADIN [Concomitant]
  3. TRACLEER [Concomitant]
  4. REMODULIN [Suspect]
  5. DIURETICS (DIURETICS) [Concomitant]

REACTIONS (4)
  - EPISTAXIS [None]
  - RESPIRATORY DISORDER [None]
  - SEPSIS [None]
  - ASPIRATION [None]
